FAERS Safety Report 11896515 (Version 1)
Quarter: 2016Q1

REPORT INFORMATION
  Report Type: Spontaneous
  Country: US (occurrence: US)
  Receive Date: 20160107
  Receipt Date: 20160107
  Transmission Date: 20160526
  Serious: No
  Sender: FDA-Public Use
  Company Number: US-DRREDDYS-USA/USA/15/0053643

PATIENT
  Age: 64 Year
  Sex: Female
  Weight: 73.4 kg

DRUGS (2)
  1. HABITROL [Suspect]
     Active Substance: NICOTINE
     Indication: SMOKING CESSATION THERAPY
     Route: 062
  2. VITAMIN D [Concomitant]
     Active Substance: CHOLECALCIFEROL
     Indication: PRODUCT USED FOR UNKNOWN INDICATION
     Route: 065

REACTIONS (5)
  - Application site rash [Not Recovered/Not Resolved]
  - Application site erythema [Recovering/Resolving]
  - Application site swelling [Recovering/Resolving]
  - Incorrect drug administration duration [Unknown]
  - Application site pruritus [Unknown]
